FAERS Safety Report 10210684 (Version 3)
Quarter: 2014Q2

REPORT INFORMATION
  Report Type: Report from Study
  Country: US (occurrence: US)
  Receive Date: 20140602
  Receipt Date: 20140606
  Transmission Date: 20141212
  Serious: Yes (Hospitalization)
  Sender: FDA-Public Use
  Company Number: US-MERCK-1405USA013871

PATIENT
  Age: 46 Year
  Sex: Female
  Weight: 65.9 kg

DRUGS (6)
  1. VORINOSTAT [Suspect]
     Indication: ACUTE MYELOID LEUKAEMIA
     Dosage: 500 MG, TID; CYCLE 2
     Route: 048
     Dates: start: 20140505, end: 20140508
  2. VORINOSTAT [Suspect]
     Dosage: 500 MG, TID CYCLE 1
     Route: 048
     Dates: start: 20140222, end: 20140224
  3. CYTARABINE [Suspect]
     Indication: ACUTE MYELOID LEUKAEMIA
     Dosage: 750 MG/M2, CONTINOUS IV INFUSION ON DAYS 4-6, CYCLE 2
     Route: 042
     Dates: start: 20140508, end: 20140511
  4. CYTARABINE [Suspect]
     Dosage: 1500 MG/M2, CONTINOUS IV INFUSION ON DAYS 4-7, CYCLE 1
     Route: 042
     Dates: start: 20140225, end: 20140228
  5. IDARUBICIN [Suspect]
     Indication: ACUTE MYELOID LEUKAEMIA
     Dosage: 8 MG/M2/DAY IV OVER 15MIN ON DAY 4-5, CYCLE 2
     Route: 042
     Dates: start: 20140508, end: 20140509
  6. IDARUBICIN [Suspect]
     Dosage: 12 MG/M2/DAY IV OVER 15MIN ON DAY 4-5, CYCLE 1
     Route: 042
     Dates: start: 20140225, end: 20140227

REACTIONS (2)
  - Febrile neutropenia [Not Recovered/Not Resolved]
  - Diverticulitis [Not Recovered/Not Resolved]
